FAERS Safety Report 9455583 (Version 2)
Quarter: 2013Q4

REPORT INFORMATION
  Report Type: Spontaneous
  Country: US (occurrence: US)
  Receive Date: 20130813
  Receipt Date: 20131121
  Transmission Date: 20140711
  Serious: No
  Sender: FDA-Public Use
  Company Number: US-PFIZER INC-2013232836

PATIENT
  Age: 62 Year
  Sex: Female

DRUGS (2)
  1. ESTRING [Suspect]
     Indication: ATROPHIC VULVOVAGINITIS
     Dosage: 2 MG, EVERY 3 MONTHS X 1 YEAR
     Route: 067
     Dates: start: 20130708, end: 20130709
  2. ESTRING [Suspect]
     Indication: VULVOVAGINAL DRYNESS

REACTIONS (1)
  - Vulvovaginal pain [Recovered/Resolved]
